FAERS Safety Report 5023845-6 (Version None)
Quarter: 2006Q2

REPORT INFORMATION
  Report Type: 
  Country: None (occurrence: None)
  Receive Date: 20060606
  Receipt Date: 20060522
  Transmission Date: 20061013
  Serious: Yes (Life-Threatening, Hospitalization)
  Sender: FDA-Public Use
  Company Number: 225619

PATIENT
  Age: 61 Year
  Sex: Female

DRUGS (2)
  1. AVASTIN [Suspect]
     Indication: PANCREATIC CARCINOMA
     Dosage: 5 MG/KG, DAYS 1 + 15, INTRAVENOUS
     Route: 042
     Dates: start: 20060301
  2. GEMCITABINE [Suspect]
     Indication: PANCREATIC CARCINOMA
     Dosage: 1 G/M2, 1/WEEK, INTRAVENOUS
     Route: 011
     Dates: start: 20060301

REACTIONS (5)
  - ADHESION [None]
  - ALPHA HAEMOLYTIC STREPTOCOCCAL INFECTION [None]
  - CHOLECYSTITIS [None]
  - CHOLELITHIASIS [None]
  - WOUND INFECTION BACTERIAL [None]
